FAERS Safety Report 16089621 (Version 1)
Quarter: 2019Q1

REPORT INFORMATION
  Report Type: Spontaneous
  Country: ES (occurrence: ES)
  Receive Date: 20190319
  Receipt Date: 20190319
  Transmission Date: 20190418
  Serious: Yes (Life-Threatening, Hospitalization)
  Sender: FDA-Public Use
  Company Number: ES-MYLANLABS-2019M1023950

PATIENT
  Age: 42 Year
  Sex: Female
  Weight: 52 kg

DRUGS (2)
  1. FERRO SANOL [Concomitant]
     Active Substance: FERROUS GLYCINE SULFATE
     Indication: IRON DEFICIENCY ANAEMIA
     Dosage: 100 MILLIGRAM, QD
     Route: 048
     Dates: start: 2012
  2. AMCHAFIBRIN 500 MG COMPRIMIDOS, ?CIDO TRANEX?MICO [Suspect]
     Active Substance: TRANEXAMIC ACID
     Indication: METRORRHAGIA
     Dosage: 1 GRAM, CYCLE
     Route: 048
     Dates: start: 201706, end: 20171108

REACTIONS (1)
  - Acute myocardial infarction [Recovered/Resolved with Sequelae]

NARRATIVE: CASE EVENT DATE: 20171108
